FAERS Safety Report 12072724 (Version 1)
Quarter: 2016Q1

REPORT INFORMATION
  Report Type: Spontaneous
  Country: US (occurrence: US)
  Receive Date: 20160212
  Receipt Date: 20160212
  Transmission Date: 20160526
  Serious: Yes (Disabling)
  Sender: FDA-Public Use
  Company Number: US-PFIZER INC-2016053838

PATIENT
  Sex: Male

DRUGS (2)
  1. INLYTA [Suspect]
     Active Substance: AXITINIB
     Dosage: 3 MG, 2X/DAY (Q12H)
     Route: 048
     Dates: start: 20140905, end: 20150621
  2. AFINITOR [Suspect]
     Active Substance: EVEROLIMUS
     Dosage: 10 MG, DAILY
     Route: 048
     Dates: start: 20150620, end: 20150824

REACTIONS (4)
  - Seizure [Unknown]
  - Cognitive disorder [Unknown]
  - Blindness [Unknown]
  - Hemiplegia [Unknown]
